FAERS Safety Report 18796050 (Version 7)
Quarter: 2021Q3

REPORT INFORMATION
  Report Type: Report from Study
  Country: CO (occurrence: CO)
  Receive Date: 20210127
  Receipt Date: 20210817
  Transmission Date: 20211014
  Serious: Yes (Hospitalization)
  Sender: FDA-Public Use
  Company Number: CO-JNJFOC-20210140052

PATIENT
  Age: 52 Year
  Sex: Female

DRUGS (6)
  1. TADALAFIL. [Concomitant]
     Active Substance: TADALAFIL
     Indication: PULMONARY HYPERTENSION
     Route: 065
  2. VENTAVIS [Suspect]
     Active Substance: ILOPROST
     Route: 055
     Dates: start: 20210205
  3. VENTAVIS [Suspect]
     Active Substance: ILOPROST
     Indication: PULMONARY ARTERIAL HYPERTENSION
     Route: 055
     Dates: start: 202101
  4. VENTAVIS [Suspect]
     Active Substance: ILOPROST
     Dosage: 154
     Route: 055
     Dates: start: 20210119
  5. VALSARTAN. [Concomitant]
     Active Substance: VALSARTAN
     Indication: CARDIAC FAILURE
     Route: 065
     Dates: start: 20210107
  6. VENTAVIS [Suspect]
     Active Substance: ILOPROST
     Indication: PULMONARY HYPERTENSION
     Route: 055
     Dates: start: 20210101

REACTIONS (12)
  - Oedema peripheral [Recovered/Resolved]
  - Drug administered in wrong device [Unknown]
  - Product prescribing issue [Not Recovered/Not Resolved]
  - Lung disorder [Recovered/Resolved]
  - Fluid retention [Recovered/Resolved]
  - Cardiomegaly [Recovered/Resolved]
  - Urinary tract infection [Recovered/Resolved]
  - Left ventricular end-diastolic pressure increased [Recovered/Resolved]
  - Inflammation [Recovered/Resolved]
  - Generalised oedema [Recovered/Resolved]
  - Hypotension [Recovered/Resolved]
  - Cardiac failure [Recovered/Resolved]

NARRATIVE: CASE EVENT DATE: 202101
